FAERS Safety Report 15144059 (Version 1)
Quarter: 2018Q3

REPORT INFORMATION
  Report Type: Spontaneous
  Country: US (occurrence: US)
  Receive Date: 20180713
  Receipt Date: 20180713
  Transmission Date: 20181010
  Serious: No
  Sender: FDA-Public Use
  Company Number: US-PERRIGO-17US025178

PATIENT
  Age: 86 Year
  Sex: Female
  Weight: 72.56 kg

DRUGS (6)
  1. ECONAZOLE NITRATE. [Suspect]
     Active Substance: ECONAZOLE NITRATE
     Dosage: SMALL AMOUNT, ONCE
     Route: 061
     Dates: start: 20170714, end: 20170714
  2. LISINOPRIL. [Concomitant]
     Active Substance: LISINOPRIL
     Indication: HYPERTENSION
     Dosage: UNK
     Route: 065
  3. ECONAZOLE NITRATE. [Suspect]
     Active Substance: ECONAZOLE NITRATE
     Indication: RASH
     Dosage: SMALL AMOUNT, TWICE
     Route: 061
     Dates: start: 20170713, end: 20170713
  4. WARFARIN [Concomitant]
     Active Substance: WARFARIN
     Indication: ANTICOAGULANT THERAPY
     Dosage: UNK
     Route: 065
  5. DILTIAZEM. [Concomitant]
     Active Substance: DILTIAZEM
     Indication: HYPERTENSION
     Dosage: UNK
     Route: 065
  6. HYDROCHLOROTHIAZIDE. [Concomitant]
     Active Substance: HYDROCHLOROTHIAZIDE
     Indication: HYPERTENSION
     Dosage: UNK
     Route: 065

REACTIONS (3)
  - Off label use [Recovered/Resolved]
  - Drug ineffective [Unknown]
  - Condition aggravated [Not Recovered/Not Resolved]

NARRATIVE: CASE EVENT DATE: 20170713
